FAERS Safety Report 11821777 (Version 1)
Quarter: 2015Q4

REPORT INFORMATION
  Report Type: Spontaneous
  Country: US (occurrence: US)
  Receive Date: 20151210
  Receipt Date: 20151210
  Transmission Date: 20160305
  Serious: No
  Sender: FDA-Public Use
  Company Number: US-JNJFOC-20150700613

PATIENT
  Age: 70 Year
  Sex: Male

DRUGS (3)
  1. IMBRUVICA [Suspect]
     Active Substance: IBRUTINIB
     Indication: WALDENSTROM^S MACROGLOBULINAEMIA
     Route: 048
     Dates: start: 20150417
  2. FISH OIL [Concomitant]
     Active Substance: FISH OIL
  3. CLOPIDOGREL [Concomitant]
     Active Substance: CLOPIDOGREL BISULFATE

REACTIONS (9)
  - Hyperhidrosis [Not Recovered/Not Resolved]
  - Acne [Unknown]
  - Constipation [Not Recovered/Not Resolved]
  - Haemorrhage [Unknown]
  - Dizziness [Unknown]
  - Presyncope [Unknown]
  - Contusion [Not Recovered/Not Resolved]
  - Blindness transient [Unknown]
  - Rash [Unknown]

NARRATIVE: CASE EVENT DATE: 2015
